FAERS Safety Report 9663425 (Version 2)
Quarter: 2013Q4

REPORT INFORMATION
  Report Type: Report from Study
  Country: US (occurrence: US)
  Receive Date: 20131101
  Receipt Date: 20131101
  Transmission Date: 20140711
  Serious: Yes (Other)
  Sender: FDA-Public Use
  Company Number: US-009507513-1208USA008290

PATIENT
  Sex: Male

DRUGS (8)
  1. VICTRELIS [Suspect]
     Indication: HEPATITIS C
     Dosage: 800 MG, TID
     Dates: start: 20111011
  2. PEGINTERFERON ALFA-2A [Suspect]
     Indication: HEPATITIS C
     Dosage: 180 MICROGRAM, QW
     Dates: start: 20111011
  3. REBETOL [Suspect]
     Indication: HEPATITIS C
     Dosage: 1400 MG, QD
     Dates: start: 20111011, end: 201112
  4. REBETOL [Suspect]
     Dosage: 1200 MG, QD
     Dates: start: 201112, end: 20120201
  5. REBETOL [Suspect]
     Dosage: 800 MG, QD
     Dates: start: 20120201
  6. FOLIC ACID [Concomitant]
     Dosage: UNK
  7. CALCIUM (UNSPECIFIED) [Concomitant]
     Dosage: UNK
  8. VITAMIN D (UNSPECIFIED) [Concomitant]
     Dosage: 400 MG, BID

REACTIONS (3)
  - Red blood cell count decreased [Unknown]
  - White blood cell count decreased [Unknown]
  - Fatigue [Unknown]
